FAERS Safety Report 26201257 (Version 1)
Quarter: 2025Q4

REPORT INFORMATION
  Report Type: Spontaneous
  Country: US (occurrence: US)
  Receive Date: 20251226
  Receipt Date: 20251226
  Transmission Date: 20260117
  Serious: Yes (Death, Hospitalization)
  Sender: AMGEN
  Company Number: US-AMGEN-USASP2025250375

PATIENT
  Age: 73 Year
  Sex: Male

DRUGS (4)
  1. PREDNISONE [Suspect]
     Active Substance: PREDNISONE
     Indication: Immunosuppressant drug therapy
     Dosage: 5 MILLIGRAM, QD
     Route: 065
  2. PEMBROLIZUMAB [Suspect]
     Active Substance: PEMBROLIZUMAB
     Indication: Neuroendocrine carcinoma of the skin
     Dosage: UNK (DURATION: 49 WEEKS)
     Route: 065
  3. SIROLIMUS [Concomitant]
     Active Substance: SIROLIMUS
     Indication: Immunosuppressant drug therapy
     Dosage: 1 MILLIGRAM, THREE TIMES PER WEEK (TIW)
  4. SIROLIMUS [Concomitant]
     Active Substance: SIROLIMUS
     Dosage: 0.5  MILLIGRAM, QWK

REACTIONS (2)
  - Pneumonia [Fatal]
  - Renal transplant failure [Unknown]
